FAERS Safety Report 24070029 (Version 1)
Quarter: 2024Q3

REPORT INFORMATION
  Report Type: Report from Study
  Country: CO (occurrence: CO)
  Receive Date: 20240710
  Receipt Date: 20240710
  Transmission Date: 20241017
  Serious: No
  Sender: ROCHE
  Company Number: CO-ROCHE-3218284

PATIENT
  Age: 56 Year
  Sex: Male
  Weight: 77.0 kg

DRUGS (66)
  1. ALECTINIB [Suspect]
     Active Substance: ALECTINIB
     Indication: Non-small cell lung cancer
     Route: 048
  2. PREDNISOLONE [Concomitant]
     Active Substance: PREDNISOLONE
     Indication: Rheumatoid arthritis
     Route: 048
     Dates: start: 2021, end: 20221220
  3. PREDNISOLONE [Concomitant]
     Active Substance: PREDNISOLONE
     Route: 048
     Dates: start: 20220119, end: 20220627
  4. PREDNISOLONE [Concomitant]
     Active Substance: PREDNISOLONE
     Route: 048
     Dates: end: 20211220
  5. PREDNISOLONE [Concomitant]
     Active Substance: PREDNISOLONE
     Route: 048
     Dates: start: 20220811, end: 20220813
  6. PREDNISOLONE [Concomitant]
     Active Substance: PREDNISOLONE
     Route: 048
     Dates: start: 20220720, end: 20220810
  7. METHOTREXATE [Concomitant]
     Active Substance: METHOTREXATE
     Indication: Rheumatoid arthritis
     Route: 048
     Dates: start: 2021, end: 202201
  8. METHOTREXATE [Concomitant]
     Active Substance: METHOTREXATE
     Route: 048
     Dates: start: 2021, end: 20211220
  9. METHOTREXATE [Concomitant]
     Active Substance: METHOTREXATE
     Route: 048
     Dates: start: 20220225, end: 20220225
  10. METHOTREXATE [Concomitant]
     Active Substance: METHOTREXATE
     Route: 048
     Dates: start: 20220326, end: 20220818
  11. METHOTREXATE [Concomitant]
     Active Substance: METHOTREXATE
     Route: 048
     Dates: start: 20211221, end: 20220224
  12. METHOTREXATE [Concomitant]
     Active Substance: METHOTREXATE
     Route: 048
     Dates: start: 20220326, end: 20220818
  13. HYDROCODONE [Concomitant]
     Active Substance: HYDROCODONE
     Indication: Analgesic therapy
     Route: 048
  14. CHLOROQUINE [Concomitant]
     Active Substance: CHLOROQUINE
     Indication: Rheumatoid arthritis
     Route: 048
     Dates: start: 202104
  15. CHLOROQUINE [Concomitant]
     Active Substance: CHLOROQUINE
     Route: 048
     Dates: start: 20211221, end: 20220818
  16. CHLOROQUINE [Concomitant]
     Active Substance: CHLOROQUINE
     Route: 048
     Dates: start: 20220910
  17. PREGABALIN [Concomitant]
     Active Substance: PREGABALIN
     Indication: Analgesic therapy
     Route: 048
     Dates: start: 20220324, end: 20220909
  18. ACETAMINOPHEN [Concomitant]
     Active Substance: ACETAMINOPHEN
     Indication: Analgesic therapy
     Route: 048
  19. ACETAMINOPHEN [Concomitant]
     Active Substance: ACETAMINOPHEN
     Route: 048
     Dates: start: 202111
  20. DENOSUMAB [Concomitant]
     Active Substance: DENOSUMAB
     Indication: Prophylaxis
     Dosage: QM
     Route: 058
     Dates: start: 20211201
  21. METHOTREXATE [Concomitant]
     Active Substance: METHOTREXATE
     Indication: Rheumatoid arthritis
     Route: 048
     Dates: start: 20220127
  22. METHOTREXATE [Concomitant]
     Active Substance: METHOTREXATE
     Route: 048
     Dates: start: 20220326, end: 20220818
  23. CALCIUM CITRATE\VITAMIN D [Concomitant]
     Active Substance: CALCIUM CITRATE\VITAMIN D
     Indication: Vitamin D deficiency
     Route: 048
     Dates: start: 202111
  24. FOLIC ACID [Concomitant]
     Active Substance: FOLIC ACID
     Indication: Vitamin D deficiency
     Route: 048
  25. BUPRENORPHINE [Concomitant]
     Active Substance: BUPRENORPHINE
     Indication: Intervertebral disc protrusion
     Dosage: PATCH
     Route: 062
     Dates: start: 202111
  26. IPRATROPIUM BROMIDE [Concomitant]
     Active Substance: IPRATROPIUM BROMIDE\IPRATROPIUM BROMIDE ANHYDROUS
     Route: 055
     Dates: start: 20220819, end: 20220821
  27. IPRATROPIUM BROMIDE [Concomitant]
     Active Substance: IPRATROPIUM BROMIDE\IPRATROPIUM BROMIDE ANHYDROUS
     Route: 055
     Dates: start: 20220822
  28. ALBUTEROL [Concomitant]
     Active Substance: ALBUTEROL
     Dosage: 2 PUFFS
     Route: 055
     Dates: start: 20220819
  29. OXYGEN [Concomitant]
     Active Substance: OXYGEN
     Indication: Lung neoplasm
     Dosage: 2
     Route: 055
     Dates: start: 20220819, end: 20220826
  30. OXYGEN [Concomitant]
     Active Substance: OXYGEN
     Dosage: 2 OTHER
     Route: 055
     Dates: start: 20220827
  31. ENOXAPARIN [Concomitant]
     Active Substance: ENOXAPARIN
     Route: 058
     Dates: start: 20220819, end: 20220826
  32. LINEZOLID [Concomitant]
     Active Substance: LINEZOLID
     Route: 042
     Dates: start: 20220819, end: 20220823
  33. PIPERACILLIN SODIUM [Concomitant]
     Active Substance: PIPERACILLIN SODIUM
     Route: 042
     Dates: start: 20220819, end: 20220824
  34. TAZOBACTAM SODIUM [Concomitant]
     Active Substance: TAZOBACTAM SODIUM
     Route: 042
     Dates: start: 20220819, end: 20220824
  35. DIHYDROCODEINE [Concomitant]
     Active Substance: DIHYDROCODEINE
     Route: 048
     Dates: start: 20220819
  36. PREDNISOLONE [Concomitant]
     Active Substance: PREDNISOLONE
     Indication: Pyrexia
     Route: 048
     Dates: start: 20220819
  37. PREDNISOLONE [Concomitant]
     Active Substance: PREDNISOLONE
     Indication: Rheumatoid arthritis
     Route: 048
     Dates: start: 20211221, end: 20220103
  38. FLUTICASONE FUROATE [Concomitant]
     Active Substance: FLUTICASONE FUROATE
     Dosage: 4 INHALATIONS
     Route: 055
     Dates: start: 20220822
  39. HYDROMORPHONE [Concomitant]
     Active Substance: HYDROMORPHONE
     Route: 042
     Dates: start: 20220823
  40. LOSARTAN [Concomitant]
     Active Substance: LOSARTAN
     Route: 048
     Dates: start: 20220825, end: 20220826
  41. BEVACIZUMAB [Concomitant]
     Active Substance: BEVACIZUMAB
     Dates: start: 20220730, end: 20221026
  42. PACLITAXEL [Concomitant]
     Active Substance: PACLITAXEL
     Dates: start: 20220730, end: 20221026
  43. PEMETREXED [Concomitant]
     Active Substance: PEMETREXED
     Dates: start: 20220730, end: 20221026
  44. CARBOPLATIN [Concomitant]
     Active Substance: CARBOPLATIN
     Dates: start: 20220730, end: 20221026
  45. LEVOMEPROMAZINE [Concomitant]
     Active Substance: LEVOMEPROMAZINE
  46. PREGABALIN [Concomitant]
     Active Substance: PREGABALIN
  47. ZOLEDRONIC ACID [Concomitant]
     Active Substance: ZOLEDRONIC ACID
  48. MORPHINE HYDROCHLORIDE [Concomitant]
     Active Substance: MORPHINE HYDROCHLORIDE
  49. LIDOCAINE HYDROCHLORIDE [Concomitant]
     Active Substance: LIDOCAINE HYDROCHLORIDE
  50. TRIAMCINOLONE ACETONIDE [Concomitant]
     Active Substance: TRIAMCINOLONE ACETONIDE
  51. CALCIUM CITRATE [Concomitant]
     Active Substance: CALCIUM CITRATE
  52. CALCIUM CARBONATE [Concomitant]
     Active Substance: CALCIUM CARBONATE
  53. ESOMEPRAZOLE [Concomitant]
     Active Substance: ESOMEPRAZOLE
  54. DIHYDROCODEINE [Concomitant]
     Active Substance: DIHYDROCODEINE
  55. LORATADINE [Concomitant]
     Active Substance: LORATADINE
  56. TRANEXAMIC ACID [Concomitant]
     Active Substance: TRANEXAMIC ACID
  57. CALCIUM POLYSTYRENE SULFONATE [Concomitant]
     Active Substance: CALCIUM POLYSTYRENE SULFONATE
  58. DEXAMETHASONE [Concomitant]
     Active Substance: DEXAMETHASONE
  59. ACYCLOVIR [Concomitant]
     Active Substance: ACYCLOVIR
  60. APIXABAN [Concomitant]
     Active Substance: APIXABAN
  61. HUMAN RED BLOOD CELL [Concomitant]
     Active Substance: HUMAN RED BLOOD CELL
  62. METHOTREXATE [Concomitant]
     Active Substance: METHOTREXATE
     Indication: Rheumatoid arthritis
     Route: 048
     Dates: start: 20211220, end: 20220224
  63. HYDROXYCHLOROQUINE [Concomitant]
     Active Substance: HYDROXYCHLOROQUINE
     Indication: Rheumatoid arthritis
     Route: 048
     Dates: end: 20211220
  64. LACTULOSE [Concomitant]
     Active Substance: LACTULOSE
     Indication: Constipation
     Route: 048
     Dates: start: 20211104, end: 20220818
  65. ONDANSETRON [Concomitant]
     Active Substance: ONDANSETRON
     Route: 030
     Dates: start: 20220921, end: 20220921
  66. CLOTRIMAZOLE [Concomitant]
     Active Substance: CLOTRIMAZOLE
     Indication: Herpes virus infection
     Route: 061
     Dates: start: 20220921, end: 20220928

REACTIONS (1)
  - Dyspepsia [Not Recovered/Not Resolved]

NARRATIVE: CASE EVENT DATE: 20211101
